FAERS Safety Report 21215069 (Version 1)
Quarter: 2022Q3

REPORT INFORMATION
  Report Type: Spontaneous
  Country: CA (occurrence: CA)
  Receive Date: 20220816
  Receipt Date: 20220816
  Transmission Date: 20221026
  Serious: Yes (Death, Other)
  Sender: FDA-Public Use
  Company Number: CA-JNJFOC-20220826518

PATIENT
  Age: 69 Year
  Sex: Male
  Weight: 53 kg

DRUGS (1)
  1. REMICADE [Suspect]
     Active Substance: INFLIXIMAB
     Indication: Ankylosing spondylitis
     Route: 041

REACTIONS (4)
  - Death [Fatal]
  - Blood pressure diastolic decreased [Unknown]
  - Blood pressure fluctuation [Unknown]
  - Off label use [Unknown]
